FAERS Safety Report 7587436-5 (Version None)
Quarter: 2011Q3

REPORT INFORMATION
  Report Type: 
  Country: None (occurrence: None)
  Receive Date: 20110704
  Receipt Date: 20110622
  Transmission Date: 20111222
  Serious: Yes (Other)
  Sender: FDA-Public Use
  Company Number: ES-BIOGENIDEC-2011BI021215

PATIENT
  Age: 47 Year
  Sex: Female
  Weight: 80 kg

DRUGS (6)
  1. TROXERUTIN [Concomitant]
     Indication: VENOUS INSUFFICIENCY
  2. POLARAMINE [Concomitant]
     Indication: PROPHYLAXIS
     Route: 042
     Dates: start: 20110201, end: 20110602
  3. PENTOXIFYLLINE [Concomitant]
     Indication: VENOUS INSUFFICIENCY
  4. TRAZODONE HCL [Concomitant]
     Indication: DEPRESSION
  5. AGOMELATINE [Concomitant]
     Indication: DEPRESSION
  6. TYSABRI [Suspect]
     Indication: MULTIPLE SCLEROSIS
     Route: 042
     Dates: start: 20110201, end: 20110602

REACTIONS (2)
  - DRUG SPECIFIC ANTIBODY PRESENT [None]
  - HYPERSENSITIVITY [None]
